FAERS Safety Report 9807511 (Version 4)
Quarter: 2015Q2

REPORT INFORMATION
  Report Type: Spontaneous
  Country: US (occurrence: US)
  Receive Date: 20140110
  Receipt Date: 20150604
  Transmission Date: 20150821
  Serious: Yes (Death, Hospitalization, Other)
  Sender: FDA-Public Use
  Company Number: US-SANOFI-AVENTIS-2012SA003190

PATIENT
  Age: 71 Year
  Sex: Male

DRUGS (10)
  1. COUMADINE [Concomitant]
     Active Substance: WARFARIN SODIUM
  2. PLAVIX [Suspect]
     Active Substance: CLOPIDOGREL BISULFATE
     Indication: ACUTE CORONARY SYNDROME
     Route: 048
     Dates: start: 20070531, end: 20070624
  3. HYDROCHLOROTHIAZIDE. [Concomitant]
     Active Substance: HYDROCHLOROTHIAZIDE
  4. LASIX [Concomitant]
     Active Substance: FUROSEMIDE
  5. PRIMIDONE. [Concomitant]
     Active Substance: PRIMIDONE
  6. LISINOPRIL. [Concomitant]
     Active Substance: LISINOPRIL
  7. VYTORIN [Concomitant]
     Active Substance: EZETIMIBE\SIMVASTATIN
     Dosage: DOSE: 10/40 (UNITS UNKNOWN)
  8. ATENOLOL. [Concomitant]
     Active Substance: ATENOLOL
     Route: 048
  9. PLAVIX [Suspect]
     Active Substance: CLOPIDOGREL BISULFATE
     Indication: PERIPHERAL ARTERIAL OCCLUSIVE DISEASE
     Route: 048
     Dates: start: 20070531, end: 20070624
  10. ASPIRIN. [Concomitant]
     Active Substance: ASPIRIN
     Dates: start: 200705, end: 200706

REACTIONS (3)
  - Death [Fatal]
  - Gastrointestinal haemorrhage [Unknown]
  - Multiple injuries [Unknown]

NARRATIVE: CASE EVENT DATE: 20070624
